FAERS Safety Report 8923147 (Version 1)
Quarter: 2012Q4

REPORT INFORMATION
  Report Type: 
  Country: US (occurrence: US)
  Receive Date: 20121123
  Receipt Date: 20121123
  Transmission Date: 20130627
  Serious: Yes (Other)
  Sender: FDA-Public Use
  Company Number: PHEH2012US022620

PATIENT
  Sex: Female

DRUGS (1)
  1. GLEEVEC [Suspect]
     Indication: MASTOCYTOSIS
     Dosage: UNK
     Route: 048
     Dates: start: 20120814

REACTIONS (3)
  - Asthma [Unknown]
  - Skin lesion [Unknown]
  - Urticaria [Unknown]
